FAERS Safety Report 15150479 (Version 1)
Quarter: 2018Q3

REPORT INFORMATION
  Report Type: Spontaneous
  Country: GB (occurrence: GB)
  Receive Date: 20180716
  Receipt Date: 20180716
  Transmission Date: 20181010
  Serious: Yes (Other)
  Sender: FDA-Public Use
  Company Number: GB-MYLANLABS-2018M1050959

PATIENT
  Age: 22 Year
  Sex: Female
  Weight: 111.12 kg

DRUGS (1)
  1. MIRTAZAPINE. [Suspect]
     Active Substance: MIRTAZAPINE
     Indication: DEPRESSION
     Dosage: 20 MG, UNK
     Route: 048

REACTIONS (4)
  - Panic reaction [Recovered/Resolved]
  - Nightmare [Recovered/Resolved]
  - Anger [Recovered/Resolved]
  - Suicidal ideation [Unknown]
